FAERS Safety Report 18291302 (Version 7)
Quarter: 2021Q1

REPORT INFORMATION
  Report Type: Report from Study
  Country: CN (occurrence: CN)
  Receive Date: 20200921
  Receipt Date: 20210224
  Transmission Date: 20210419
  Serious: Yes (Hospitalization)
  Sender: FDA-Public Use
  Company Number: CN-TEVA-2020-CN-1825677

PATIENT
  Age: 71 Year
  Sex: Male
  Weight: 71 kg

DRUGS (24)
  1. AZILECT [Suspect]
     Active Substance: RASAGILINE MESYLATE
     Indication: PARKINSON^S DISEASE
     Dosage: 1 MILLIGRAM DAILY;
     Route: 048
     Dates: start: 20200803, end: 20200817
  2. TOBRADEX [Concomitant]
     Active Substance: DEXAMETHASONE\TOBRAMYCIN
     Indication: ANTIBIOTIC PROPHYLAXIS
     Dosage: 1 DOSAGE FORMS DAILY;
     Route: 047
     Dates: start: 20200812, end: 20200812
  3. BOSU [Concomitant]
     Indication: HYPERTENSION
     Dosage: 2.5 MILLIGRAM DAILY;
     Route: 048
     Dates: start: 20200521
  4. BAYASPIRIN [Concomitant]
     Active Substance: ASPIRIN
     Indication: CEREBRAL INFARCTION
     Dosage: 100 MILLIGRAM DAILY;
     Route: 048
     Dates: start: 20200521, end: 20200817
  5. LACTATED RINGERS SOLUTION [Concomitant]
     Active Substance: CALCIUM CHLORIDE\POTASSIUM CHLORIDE\SODIUM CHLORIDE\SODIUM LACTATE
     Indication: ADJUVANT THERAPY
  6. ZHUOBIAN [Concomitant]
     Indication: ADJUVANT THERAPY
  7. EXFORGE [Concomitant]
     Active Substance: AMLODIPINE BESYLATE\VALSARTAN
     Indication: HYPERTENSION
     Dosage: 1 DOSAGE FORMS DAILY;
     Route: 048
     Dates: start: 20200521
  8. PROPARACAINE HYDROCHLORIDE. [Concomitant]
     Active Substance: PROPARACAINE HYDROCHLORIDE
     Indication: ANAESTHESIA
     Dosage: 1 DOSAGE FORMS DAILY;
     Route: 047
     Dates: start: 20200812, end: 20200812
  9. MADOPAR [Concomitant]
     Active Substance: BENSERAZIDE HYDROCHLORIDE\LEVODOPA
     Indication: PARKINSON^S DISEASE
     Dosage: 375 MILLIGRAM DAILY;
     Route: 048
     Dates: start: 20200601
  10. TOBREX [Concomitant]
     Active Substance: TOBRAMYCIN
     Indication: ANTIBIOTIC PROPHYLAXIS
     Dosage: 2 DOSAGE FORMS DAILY;
     Route: 047
     Dates: start: 20200812, end: 20200812
  11. TOBRADEX [Concomitant]
     Active Substance: DEXAMETHASONE\TOBRAMYCIN
     Dosage: 12 DOSAGE FORMS DAILY;
     Route: 047
     Dates: start: 20200813, end: 20200817
  12. TOBRADEX [Concomitant]
     Active Substance: DEXAMETHASONE\TOBRAMYCIN
     Dosage: 4 DOSAGE FORMS DAILY;
     Route: 047
     Dates: start: 20200813
  13. CRAVIT [Concomitant]
     Active Substance: LEVOFLOXACIN
     Dosage: 4 DOSAGE FORMS DAILY;
     Route: 047
     Dates: start: 20200814, end: 20200901
  14. SODIUM HYALURONATE [Concomitant]
     Active Substance: HYALURONATE SODIUM
     Dosage: 4 DOSAGE FORMS DAILY;
     Route: 047
     Dates: start: 20200813, end: 20200901
  15. SHAPUAISI [Concomitant]
     Indication: CATARACT
  16. SODIUM HYALURONATE [Concomitant]
     Active Substance: HYALURONATE SODIUM
     Indication: DRY EYE
     Dosage: 1 DOSAGE FORMS DAILY;
     Route: 047
     Dates: start: 20200812, end: 20200812
  17. AZILECT [Suspect]
     Active Substance: RASAGILINE MESYLATE
     Dosage: 1 MILLIGRAM DAILY;
     Route: 048
     Dates: start: 20201019
  18. TRASTAL [Concomitant]
     Indication: PARKINSON^S DISEASE
     Dosage: 150 MILLIGRAM DAILY; SUSTAINED?RELEASE TABLETS
     Route: 048
     Dates: start: 20200701
  19. SHAPUAISI [Concomitant]
     Indication: AGE-RELATED MACULAR DEGENERATION
     Dosage: 1?2 EYE DROPS
     Route: 047
     Dates: start: 202005, end: 20200808
  20. ZHUOBIAN [Concomitant]
     Indication: OPHTHALMOLOGICAL EXAMINATION
     Dosage: 2 DOSAGE FORMS DAILY;
     Route: 047
     Dates: start: 20200812, end: 20200812
  21. JIALEDING [Concomitant]
     Indication: ANXIETY
     Dosage: .4 MILLIGRAM DAILY;
     Route: 048
     Dates: start: 20200812, end: 20200812
  22. LACTATED RINGERS SOLUTION [Concomitant]
     Active Substance: CALCIUM CHLORIDE\POTASSIUM CHLORIDE\SODIUM CHLORIDE\SODIUM LACTATE
     Indication: ACID BASE BALANCE
     Dosage: 500 ML DAILY;
     Route: 042
     Dates: start: 20200812, end: 20200812
  23. CRAVIT [Concomitant]
     Active Substance: LEVOFLOXACIN
     Indication: ANTIBIOTIC PROPHYLAXIS
     Dosage: 1 DOSAGE FORMS DAILY;
     Route: 047
     Dates: start: 20200812, end: 20200812
  24. CRAVIT [Concomitant]
     Active Substance: LEVOFLOXACIN
     Dosage: 12 DOSAGE FORMS DAILY;
     Route: 047
     Dates: start: 20200813, end: 20200813

REACTIONS (3)
  - Conjunctivitis [Unknown]
  - Neovascular age-related macular degeneration [Recovered/Resolved with Sequelae]
  - Cataract [Recovered/Resolved with Sequelae]

NARRATIVE: CASE EVENT DATE: 20200813
